FAERS Safety Report 7834031-6 (Version None)
Quarter: 2011Q4

REPORT INFORMATION
  Report Type: 
  Country: None (occurrence: None)
  Receive Date: 20111024
  Receipt Date: 20111024
  Transmission Date: 20120403
  Serious: Yes (Hospitalization)
  Sender: FDA-Public Use
  Company Number: None

PATIENT
  Age: 36 Year
  Sex: Female

DRUGS (1)
  1. SAPHRIS [Suspect]
     Indication: PSYCHOTIC DISORDER
     Dosage: 5 MG
     Route: 048
     Dates: start: 20111001, end: 20111002

REACTIONS (2)
  - RESPIRATORY DISORDER [None]
  - DRUG HYPERSENSITIVITY [None]
